FAERS Safety Report 6233460-4 (Version None)
Quarter: 2009Q2

REPORT INFORMATION
  Report Type: 
  Country: None (occurrence: None)
  Receive Date: 20090616
  Receipt Date: 20090616
  Transmission Date: 20091009
  Serious: Yes (Other)
  Sender: FDA-Public Use
  Company Number: None

PATIENT
  Age: 63 Year
  Sex: Female
  Weight: 74.3899 kg

DRUGS (3)
  1. DOXYCYCLINE HCL [Suspect]
     Indication: ARTHROPOD BITE
     Dosage: 1 TWICE A DAY PO
     Route: 048
     Dates: start: 20090405, end: 20090412
  2. DOXYCYCLINE HCL [Suspect]
     Dates: start: 20090413, end: 20090425
  3. CEPHALEXIN [Concomitant]

REACTIONS (10)
  - ARTHRALGIA [None]
  - ARTHROPATHY [None]
  - ASTHENIA [None]
  - INSOMNIA [None]
  - JOINT STIFFNESS [None]
  - MUSCULOSKELETAL PAIN [None]
  - MUSCULOSKELETAL STIFFNESS [None]
  - PAIN [None]
  - PAIN IN EXTREMITY [None]
  - TENDON DISORDER [None]
